FAERS Safety Report 10197305 (Version 1)
Quarter: 2014Q2

REPORT INFORMATION
  Report Type: Spontaneous
  Country: US (occurrence: US)
  Receive Date: 20140527
  Receipt Date: 20140527
  Transmission Date: 20141212
  Serious: Yes (Other)
  Sender: FDA-Public Use
  Company Number: PHHY2014US063873

PATIENT
  Age: 15 Year
  Sex: Female

DRUGS (21)
  1. CICLOSPORIN [Suspect]
     Indication: PROPHYLAXIS AGAINST GRAFT VERSUS HOST DISEASE
     Dosage: 3 MG/KG, PER DAY
  2. METHOTREXATE [Suspect]
     Indication: PROPHYLAXIS AGAINST GRAFT VERSUS HOST DISEASE
     Dosage: 15 MG/M2 ON DAYS +1
     Route: 042
  3. METHOTREXATE [Suspect]
     Dosage: 10 MG/M2 ON DAYS +3, +6 AND +11
     Route: 042
  4. CYCLOPHOSPHAMIDE [Suspect]
     Dosage: 50 MG/KG, QD
     Route: 042
  5. BUSULFAN [Suspect]
     Dosage: 4 MG/KG, DAILY
     Route: 048
  6. ZINC SULFATE [Concomitant]
     Dosage: 200 MG, DAILY
     Route: 048
  7. ACYCLOVIR [Concomitant]
  8. ERGOCALCIFEROL [Concomitant]
  9. HYDROCORTISONE [Concomitant]
  10. LANSOPRAZOLE [Concomitant]
  11. MORPHINE [Concomitant]
  12. POTASSIUM CHLORIDE [Concomitant]
  13. SERTRALINE [Concomitant]
  14. ZOLPIDEM [Concomitant]
  15. TRIMETHOPRIM SULFAMETHOXAZOLE [Concomitant]
  16. ORAL CONTRACEPTIVE NOS [Concomitant]
  17. PENTAMIDINE [Concomitant]
     Indication: PROPHYLAXIS
  18. COPPER [Concomitant]
     Indication: COPPER DEFICIENCY
     Dosage: 2 MG, DAILY
     Route: 048
  19. MYCOPHENOLATE MOFETIL [Concomitant]
  20. CETIRIZINE [Concomitant]
  21. ONDANSETRON [Concomitant]

REACTIONS (3)
  - Idiopathic pneumonia syndrome [Unknown]
  - Microangiopathic haemolytic anaemia [Recovering/Resolving]
  - Graft versus host disease in skin [Recovering/Resolving]
